FAERS Safety Report 20135901 (Version 10)
Quarter: 2023Q2

REPORT INFORMATION
  Report Type: Spontaneous
  Country: ES (occurrence: ES)
  Receive Date: 20211201
  Receipt Date: 20230413
  Transmission Date: 20230721
  Serious: Yes (Death, Other)
  Sender: FDA-Public Use
  Company Number: None

PATIENT
  Age: 47 Year
  Sex: Female
  Weight: 127 kg

DRUGS (30)
  1. METHOTREXATE SODIUM [Suspect]
     Active Substance: METHOTREXATE SODIUM
     Indication: Rheumatoid arthritis
     Dosage: 10 MG, WEEKLY (METHOTREXATE 2.5MG: 0-2-2 SUNDAY)
     Route: 065
     Dates: start: 2019, end: 20211024
  2. METHOTREXATE SODIUM [Suspect]
     Active Substance: METHOTREXATE SODIUM
     Dosage: 2.5 MG WEEKLY, 0-2-2 SUNDAY
     Dates: start: 2019
  3. BARICITINIB [Suspect]
     Active Substance: BARICITINIB
     Indication: Rheumatoid arthritis
     Dosage: UNK
     Dates: start: 20210330
  4. BARICITINIB [Suspect]
     Active Substance: BARICITINIB
     Dosage: UNK
     Dates: start: 2021, end: 20211001
  5. RINVOQ [Suspect]
     Active Substance: UPADACITINIB
     Indication: Rheumatoid arthritis
     Dosage: 15 MG, 1X/DAY
     Route: 048
     Dates: start: 20211020, end: 20211024
  6. RINVOQ [Suspect]
     Active Substance: UPADACITINIB
     Dosage: 75 MG
  7. ARCOXIA [Suspect]
     Active Substance: ETORICOXIB
     Indication: Rheumatoid arthritis
     Dosage: 90 MG, 1X/DAY AT DINNER
     Route: 048
     Dates: start: 2019, end: 20211024
  8. ARCOXIA [Suspect]
     Active Substance: ETORICOXIB
     Dosage: UNK, 1X/DAY
     Route: 048
     Dates: start: 2019
  9. ARCOXIA [Suspect]
     Active Substance: ETORICOXIB
     Dosage: UNK
     Route: 048
     Dates: start: 2019, end: 20211024
  10. ADALIMUMAB [Suspect]
     Active Substance: ADALIMUMAB
     Indication: Rheumatoid arthritis
     Dosage: UNK
     Route: 058
  11. ADALIMUMAB [Suspect]
     Active Substance: ADALIMUMAB
     Dosage: UNK
     Route: 058
  12. ADALIMUMAB [Suspect]
     Active Substance: ADALIMUMAB
     Dosage: UNK
     Route: 058
  13. ADALIMUMAB [Suspect]
     Active Substance: ADALIMUMAB
     Dosage: UNK, 1X/DAY
     Route: 058
     Dates: start: 2019
  14. ADALIMUMAB [Suspect]
     Active Substance: ADALIMUMAB
     Dosage: UNK
     Route: 058
  15. ADALIMUMAB [Suspect]
     Active Substance: ADALIMUMAB
     Dosage: UNK
     Route: 058
     Dates: start: 2021, end: 2021
  16. TOCILIZUMAB [Suspect]
     Active Substance: TOCILIZUMAB
     Indication: Rheumatoid arthritis
     Dosage: UNK
     Dates: start: 20201116
  17. LEFLUNOMIDE [Suspect]
     Active Substance: LEFLUNOMIDE
  18. ETORICOXIB [Suspect]
     Active Substance: ETORICOXIB
     Dosage: 1 TABLET AT DINNER
  19. ETORICOXIB [Suspect]
     Active Substance: ETORICOXIB
     Dosage: 1 TABLET AT DINNER(TIME)
     Route: 048
  20. OMEPRAZOLE [Concomitant]
     Active Substance: OMEPRAZOLE
     Dosage: UNK
  21. PREDNISONE [Concomitant]
     Active Substance: PREDNISONE
     Dosage: UNK
  22. METAMIZOLE MAGNESIUM [Concomitant]
     Active Substance: METAMIZOLE MAGNESIUM
  23. FERROUS GLYCINE SULFATE [Concomitant]
     Active Substance: FERROUS GLYCINE SULFATE
  24. GABAPENTIN [Concomitant]
     Active Substance: GABAPENTIN
  25. METHYLPREDNISOLONE ACETATE [Concomitant]
     Active Substance: METHYLPREDNISOLONE ACETATE
     Indication: Condition aggravated
     Dosage: UNK
  26. ACETAMINOPHEN [Concomitant]
     Active Substance: ACETAMINOPHEN
     Dosage: UNK
  27. FOLIC ACID [Concomitant]
     Active Substance: FOLIC ACID
     Indication: Product used for unknown indication
     Dosage: UNK
  28. FOLIC ACID [Concomitant]
     Active Substance: FOLIC ACID
     Indication: Product used for unknown indication
  29. ETANERCEPT [Concomitant]
     Active Substance: ETANERCEPT
     Dosage: UNK
  30. NOLOTIL COMPOSITUM [Concomitant]
     Dosage: UNK

REACTIONS (3)
  - Cardio-respiratory arrest [Fatal]
  - Sudden death [Fatal]
  - Drug ineffective [Unknown]

NARRATIVE: CASE EVENT DATE: 20211024
